FAERS Safety Report 9476426 (Version 2)
Quarter: 2013Q3

REPORT INFORMATION
  Report Type: Spontaneous
  Country: FI (occurrence: FI)
  Receive Date: 20130826
  Receipt Date: 20130903
  Transmission Date: 20140515
  Serious: No
  Sender: FDA-Public Use
  Company Number: FI-JNJFOC-20130805736

PATIENT
  Age: 13 Year
  Sex: Male

DRUGS (14)
  1. DUROGESIC [Suspect]
     Indication: PRODUCT USED FOR UNKNOWN INDICATION
     Route: 062
     Dates: start: 201201
  2. SODIUM VALPROATE [Concomitant]
     Route: 065
  3. GAVISCON NOS [Concomitant]
     Route: 065
  4. LAXOBERON [Concomitant]
     Route: 065
  5. PULMICORT [Concomitant]
     Route: 065
  6. VENTOLIN [Concomitant]
     Route: 065
  7. MELATONIN [Concomitant]
     Route: 065
  8. ATROVENT [Concomitant]
     Route: 065
  9. LOSEC [Concomitant]
     Route: 065
  10. MOVICOL [Concomitant]
     Route: 065
  11. LAMICTAL [Concomitant]
     Route: 065
  12. PARACETAMOL [Concomitant]
     Route: 065
  13. VITAMIN D [Concomitant]
     Route: 065
  14. OXYNORM [Concomitant]
     Route: 065

REACTIONS (1)
  - Skin irritation [Unknown]
